FAERS Safety Report 6910734-2 (Version None)
Quarter: 2010Q3

REPORT INFORMATION
  Report Type: 
  Country: None (occurrence: None)
  Receive Date: 20100806
  Receipt Date: 20100728
  Transmission Date: 20110219
  Serious: Yes (Hospitalization, Other)
  Sender: FDA-Public Use
  Company Number: JP-ROCHE-718958

PATIENT

DRUGS (2)
  1. XELODA [Suspect]
     Indication: COLON CANCER
     Dosage: DOSAGE IS UNCERTAIN, DRUG REPORTED AS XELODA 300
     Route: 048
  2. WARFARIN [Suspect]
     Indication: PRODUCT USED FOR UNKNOWN INDICATION
     Dosage: DOSAGE IS UNCERTAIN
     Route: 048

REACTIONS (2)
  - CEREBRAL HAEMORRHAGE [None]
  - RETROPERITONEAL HAEMORRHAGE [None]
